FAERS Safety Report 22862037 (Version 2)
Quarter: 2023Q4

REPORT INFORMATION
  Report Type: Report from Study
  Country: EG (occurrence: EG)
  Receive Date: 20230824
  Receipt Date: 20231005
  Transmission Date: 20240109
  Serious: Yes (Other)
  Sender: FDA-Public Use
  Company Number: EG-002147023-NVSC2022EG151879

PATIENT
  Age: 52 Year
  Sex: Female

DRUGS (5)
  1. GLIVEC [Suspect]
     Active Substance: IMATINIB MESYLATE
     Indication: Chronic myeloid leukaemia
     Dosage: UNK UNK, QD (STARTED 2 YAERS AGO 4 CAPS)
     Route: 048
  2. GLIVEC [Suspect]
     Active Substance: IMATINIB MESYLATE
     Dosage: 400 MG, QD (4 CAPS\DAY)
     Route: 048
     Dates: start: 202005, end: 202302
  3. LEVOTHYROXINE [Concomitant]
     Active Substance: LEVOTHYROXINE
     Indication: Hypothyroidism
     Dosage: UNK, QD (4 YEARS AGO, 1 TAB ONCE DAILY AT BREAKFAS)
     Route: 048
  4. GASTRAZOLE [Concomitant]
     Indication: Abdominal pain upper
     Dosage: UNK UNK, QD (TAB/DAY (AT NIGHT)
     Route: 048
     Dates: start: 202006
  5. CONTROLOC [Concomitant]
     Active Substance: PANTOPRAZOLE SODIUM
     Indication: Abdominal pain upper
     Dosage: UNK UNK, QD (1 TAB IN MORNING)
     Route: 048

REACTIONS (19)
  - Duodenitis [Recovering/Resolving]
  - Gastrooesophageal reflux disease [Recovering/Resolving]
  - Diaphragmatic hernia [Recovering/Resolving]
  - Abdominal pain upper [Recovering/Resolving]
  - Nausea [Recovering/Resolving]
  - Vomiting [Recovering/Resolving]
  - Chest pain [Recovering/Resolving]
  - Oropharyngeal pain [Unknown]
  - Throat tightness [Recovering/Resolving]
  - Cough [Recovering/Resolving]
  - Dyspepsia [Recovering/Resolving]
  - Chills [Recovered/Resolved]
  - Pyrexia [Recovered/Resolved]
  - Dizziness [Recovering/Resolving]
  - Fatigue [Recovering/Resolving]
  - Hyperhidrosis [Recovering/Resolving]
  - Nasopharyngitis [Recovered/Resolved]
  - Pyrexia [Recovered/Resolved]
  - Productive cough [Recovered/Resolved]

NARRATIVE: CASE EVENT DATE: 20200601
